FAERS Safety Report 10904000 (Version 1)
Quarter: 2015Q1

REPORT INFORMATION
  Report Type: Spontaneous
  Country: FR (occurrence: None)
  Receive Date: 20150306
  Receipt Date: 20150306
  Transmission Date: 20150721
  Serious: Yes (Death)
  Sender: FDA-Public Use
  Company Number: 2015FR0089

PATIENT

DRUGS (1)
  1. ANAKINRA (ANAKINRA) [Suspect]
     Active Substance: ANAKINRA
     Indication: SCHNITZLER^S SYNDROME

REACTIONS (2)
  - Oesophageal carcinoma [None]
  - Lower respiratory tract infection [None]
